FAERS Safety Report 8370911 (Version 2)
Quarter: 2013Q1

REPORT INFORMATION
  Report Type: Report from Study
  Country: US (occurrence: US)
  Receive Date: 20120129
  Receipt Date: 20130128
  Transmission Date: 20140127
  Serious: No
  Sender: FDA-Public Use
  Company Number: US-ABBOTT-11P-163-0872446-00

PATIENT
  Age: 39 Year
  Sex: Female

DRUGS (5)
  1. HUMIRA 40 MG/0.8 ML PEN [Suspect]
     Indication: CROHN^S DISEASE
     Dates: start: 20110914
  2. LIALDA [Concomitant]
     Indication: CROHN^S DISEASE
  3. VITAMIN D [Concomitant]
     Indication: VITAMIN D DECREASED
  4. BENTYL [Concomitant]
     Indication: ABDOMINAL PAIN UPPER
  5. UNKNOWN MEDICATION [Concomitant]
     Indication: ABDOMINAL PAIN UPPER

REACTIONS (10)
  - Injection site pain [Not Recovered/Not Resolved]
  - Injection site swelling [Not Recovered/Not Resolved]
  - Injection site bruising [Not Recovered/Not Resolved]
  - Nasopharyngitis [Not Recovered/Not Resolved]
  - Headache [Not Recovered/Not Resolved]
  - Nasal congestion [Not Recovered/Not Resolved]
  - Cough [Not Recovered/Not Resolved]
  - Injection site haemorrhage [Unknown]
  - Blood cholesterol increased [Unknown]
  - Hypertension [Unknown]
